FAERS Safety Report 10243000 (Version 2)
Quarter: 2014Q3

REPORT INFORMATION
  Report Type: Spontaneous
  Country: US (occurrence: US)
  Receive Date: 20140618
  Receipt Date: 20140804
  Transmission Date: 20150326
  Serious: Yes (Other)
  Sender: FDA-Public Use
  Company Number: US-TEVA-487837USA

PATIENT
  Sex: Female

DRUGS (1)
  1. VENLAFAXINE [Suspect]
     Active Substance: VENLAFAXINE HYDROCHLORIDE
     Indication: PRODUCT USED FOR UNKNOWN INDICATION
     Dates: end: 20140516

REACTIONS (17)
  - Feeling abnormal [Unknown]
  - Personality change [Unknown]
  - Memory impairment [Unknown]
  - Adverse event [Unknown]
  - Disturbance in attention [Unknown]
  - Musculoskeletal stiffness [Unknown]
  - Abnormal dreams [Unknown]
  - Abasia [Unknown]
  - Impaired driving ability [Unknown]
  - Vision blurred [Unknown]
  - Blindness [Unknown]
  - Diplopia [Unknown]
  - Headache [Unknown]
  - Dyskinesia [Unknown]
  - Muscle spasms [Unknown]
  - Paraesthesia [Unknown]
  - Speech disorder [Unknown]
